FAERS Safety Report 5973348-7 (Version None)
Quarter: 2008Q4

REPORT INFORMATION
  Report Type: 
  Country: None (occurrence: None)
  Receive Date: 20081201
  Receipt Date: 20080114
  Transmission Date: 20090506
  Serious: No
  Sender: FDA-Public Use
  Company Number: US-AMGEN-KDL260726

PATIENT
  Sex: Female

DRUGS (1)
  1. ENBREL [Suspect]
     Indication: RHEUMATOID ARTHRITIS
     Route: 058
     Dates: start: 20020401

REACTIONS (10)
  - ABDOMINAL PAIN [None]
  - BACK PAIN [None]
  - CHOLECYSTITIS [None]
  - DYSGEUSIA [None]
  - GASTRIC ULCER [None]
  - GASTRITIS [None]
  - HELICOBACTER PYLORI IDENTIFICATION TEST POSITIVE [None]
  - OROPHARYNGEAL PAIN [None]
  - PYREXIA [None]
  - TONGUE DISORDER [None]
